FAERS Safety Report 22025590 (Version 1)
Quarter: 2023Q1

REPORT INFORMATION
  Report Type: Spontaneous
  Country: US (occurrence: None)
  Receive Date: 20230223
  Receipt Date: 20230223
  Transmission Date: 20230417
  Serious: No
  Sender: FDA-Public Use
  Company Number: US-ROCHE-3128195

PATIENT
  Sex: Female
  Weight: 74.456 kg

DRUGS (41)
  1. XOLAIR [Suspect]
     Active Substance: OMALIZUMAB
     Indication: Chronic spontaneous urticaria
     Dosage: 1/2 DOSE
     Route: 058
     Dates: start: 20220507, end: 20220518
  2. XOLAIR [Suspect]
     Active Substance: OMALIZUMAB
  3. XOLAIR [Suspect]
     Active Substance: OMALIZUMAB
     Route: 058
     Dates: start: 20220607
  4. XOLAIR [Suspect]
     Active Substance: OMALIZUMAB
  5. VALIUM [Suspect]
     Active Substance: DIAZEPAM
     Indication: Anxiety
     Dosage: FOR ANXIETY WHEN ITCHING IS OUT OF CONTROL
     Route: 048
     Dates: start: 20220426
  6. ESBRIET [Suspect]
     Active Substance: PIRFENIDONE
     Indication: Hypersensitivity
     Dosage: (6) 20 MG TABLETS ONE TIME ONLY
     Route: 048
     Dates: start: 20220411
  7. ESBRIET [Suspect]
     Active Substance: PIRFENIDONE
     Dosage: (5) 20 MG TABLETS ONE TIME ONLY
     Route: 048
     Dates: start: 20220412
  8. ESBRIET [Suspect]
     Active Substance: PIRFENIDONE
     Dosage: (4) 20 MG TABLETS ONE TIME ONLY
     Route: 048
     Dates: start: 20220413
  9. ESBRIET [Suspect]
     Active Substance: PIRFENIDONE
     Dosage: (3) 20 MG TABLETS ONE TIME ONLY
     Route: 048
  10. ESBRIET [Suspect]
     Active Substance: PIRFENIDONE
     Dosage: (2) 20 MG TABLETS ONE TIME ONLY
     Route: 048
     Dates: start: 20220415
  11. ESBRIET [Suspect]
     Active Substance: PIRFENIDONE
     Dosage: 20 MG TABLET ONE TIME ONLY
     Route: 048
     Dates: start: 20220416
  12. ESBRIET [Suspect]
     Active Substance: PIRFENIDONE
     Route: 048
     Dates: start: 20220504, end: 20220509
  13. ESBRIET [Suspect]
     Active Substance: PIRFENIDONE
     Route: 048
     Dates: start: 20220510, end: 20220515
  14. ESBRIET [Suspect]
     Active Substance: PIRFENIDONE
     Route: 048
     Dates: start: 20220516, end: 20220521
  15. ESBRIET [Suspect]
     Active Substance: PIRFENIDONE
     Route: 048
     Dates: start: 20220522, end: 20220528
  16. ESBRIET [Suspect]
     Active Substance: PIRFENIDONE
     Route: 048
     Dates: start: 20220529, end: 20220601
  17. ESBRIET [Suspect]
     Active Substance: PIRFENIDONE
     Dosage: FOR 6 DAYS
     Route: 048
     Dates: start: 20220607
  18. ESBRIET [Suspect]
     Active Substance: PIRFENIDONE
     Dosage: TITRATE DOWN BY 2.5 MG EVERY 6 DAYS
     Route: 048
     Dates: start: 202206
  19. ESBRIET [Suspect]
     Active Substance: PIRFENIDONE
     Dosage: TITRATE DOWN BY 2.5 MG EVERY 6 DAYS
     Route: 048
     Dates: start: 202206
  20. ESBRIET [Suspect]
     Active Substance: PIRFENIDONE
     Dosage: TITRATE DOWN BY 2.5 MG EVERY 6 DAYS
     Route: 048
     Dates: start: 202206
  21. ESBRIET [Suspect]
     Active Substance: PIRFENIDONE
     Dosage: TITRATE DOWN BY 2.5 MG EVERY 6 DAYS
     Route: 048
     Dates: start: 202206
  22. ESBRIET [Suspect]
     Active Substance: PIRFENIDONE
     Dosage: TITRATE DOWN BY 2.5 MG EVERY 6 DAYS
     Route: 048
     Dates: start: 20220623
  23. ALLEGRA [Concomitant]
     Active Substance: FEXOFENADINE HYDROCHLORIDE
     Indication: Urticaria
     Dosage: IN MORNING
     Route: 048
     Dates: start: 20220607
  24. ALLEGRA [Concomitant]
     Active Substance: FEXOFENADINE HYDROCHLORIDE
     Dosage: (3)180 MG TABLETS IN THE MORNING
     Route: 048
     Dates: start: 20220620
  25. ZYRTEC [Concomitant]
     Active Substance: CETIRIZINE HYDROCHLORIDE
     Indication: Pruritus
     Dosage: AT NIGHT
     Route: 048
     Dates: start: 20220607
  26. ZYRTEC [Concomitant]
     Active Substance: CETIRIZINE HYDROCHLORIDE
     Dosage: (3)10 MG TABLETS AT NIGHT
     Route: 048
     Dates: start: 20220620
  27. SINGULAIR [Concomitant]
     Active Substance: MONTELUKAST SODIUM
     Indication: Dyspnoea
     Dosage: IN THE MORNING
     Route: 048
     Dates: start: 20220607
  28. NEXIUM [Concomitant]
     Active Substance: ESOMEPRAZOLE MAGNESIUM
     Indication: Gastrooesophageal reflux disease
     Dosage: AT NIGHT
     Route: 048
     Dates: start: 20220623
  29. NEXIUM [Concomitant]
     Active Substance: ESOMEPRAZOLE MAGNESIUM
     Indication: Chest pain
  30. PEPCID [Concomitant]
     Active Substance: FAMOTIDINE
     Indication: Chest pain
     Dosage: AT NIGHT
     Route: 048
     Dates: start: 20220607, end: 20220609
  31. PEPCID [Concomitant]
     Active Substance: FAMOTIDINE
     Indication: Gastrooesophageal reflux disease
     Dosage: (3)10 MG TABLETS AT NIGHT
     Route: 048
     Dates: start: 20220610, end: 20220620
  32. EPINEPHRINE [Concomitant]
     Active Substance: EPINEPHRINE
     Indication: Anaphylactic reaction
     Route: 058
     Dates: start: 20220411
  33. ALBUTEROL SULFATE [Concomitant]
     Active Substance: ALBUTEROL SULFATE
     Indication: Dyspnoea
     Dosage: 8.5 GM NET CONTENT/200 METER DOSE
     Route: 055
     Dates: start: 202204
  34. ALBUTEROL SULFATE [Concomitant]
     Active Substance: ALBUTEROL SULFATE
     Indication: Painful respiration
  35. TYLENOL [Concomitant]
     Active Substance: ACETAMINOPHEN
     Indication: Headache
     Route: 048
  36. TYLENOL [Concomitant]
     Active Substance: ACETAMINOPHEN
     Indication: Toothache
  37. BENADRYL [Concomitant]
     Active Substance: DIPHENHYDRAMINE HYDROCHLORIDE
     Indication: Urticaria
     Dosage: 25-50 MG AS NEEDED,
     Route: 048
     Dates: start: 202204
  38. BENADRYL [Concomitant]
     Active Substance: DIPHENHYDRAMINE HYDROCHLORIDE
     Indication: Pruritus
  39. VITAMIN B12 [Concomitant]
     Active Substance: CYANOCOBALAMIN
     Indication: Vitamin B12 deficiency
     Dosage: FOR 2 MONTHS
     Route: 058
     Dates: start: 20220612
  40. NYSTATIN [Concomitant]
     Active Substance: NYSTATIN
     Indication: Candida infection
     Dosage: 100,000 MG/ML DOSE 1 ML FOUR TIMES DAILY
     Route: 048
     Dates: start: 20220420, end: 20220507
  41. PREDNISONE [Concomitant]
     Active Substance: PREDNISONE
     Dates: start: 20220504, end: 20220509

REACTIONS (12)
  - Chest pain [Not Recovered/Not Resolved]
  - Dyspnoea [Not Recovered/Not Resolved]
  - Toothache [Not Recovered/Not Resolved]
  - Oropharyngeal pain [Unknown]
  - Ear pain [Unknown]
  - Urticaria [Recovered/Resolved]
  - Vitamin B12 deficiency [Not Recovered/Not Resolved]
  - Pruritus [Recovered/Resolved]
  - Swelling [Recovered/Resolved]
  - Epistaxis [Recovered/Resolved]
  - Off label use [Unknown]
  - Off label use [Unknown]

NARRATIVE: CASE EVENT DATE: 20220501
